FAERS Safety Report 9817865 (Version 1)
Quarter: 2013Q4

REPORT INFORMATION
  Report Type: Spontaneous
  Country: US (occurrence: None)
  Receive Date: 20131223
  Receipt Date: 20131223
  Transmission Date: 20140711
  Serious: No
  Sender: FDA-Public Use
  Company Number: 219921

PATIENT
  Age: 65 Year
  Sex: Female

DRUGS (6)
  1. PICATO GEL [Suspect]
     Dosage: 1 IN 1 D TOPICAL
     Dates: start: 201209
  2. HORMONE PATCH (HORMONE NOS) [Concomitant]
  3. PREVACID (LANSOPRAZOLE) [Concomitant]
  4. VIT D (ERGOCALCIFEROL) [Concomitant]
  5. CETIRIZINE (CETIRIZINE) [Concomitant]
  6. ACIDOPHILUS (LACTOBACILLUS ACIDOPHILUS) [Concomitant]

REACTIONS (4)
  - Application site erythema [None]
  - Skin exfoliation [None]
  - Application site exfoliation [None]
  - Drug administered at inappropriate site [None]
